FAERS Safety Report 14855214 (Version 1)
Quarter: 2018Q2

REPORT INFORMATION
  Report Type: Spontaneous
  Country: US (occurrence: US)
  Receive Date: 20180507
  Receipt Date: 20180507
  Transmission Date: 20180711
  Serious: No
  Sender: FDA-Public Use
  Company Number: US-ROCHE-1950264

PATIENT
  Sex: Male

DRUGS (19)
  1. ADVAIR HFA [Concomitant]
     Active Substance: FLUTICASONE PROPIONATE\SALMETEROL XINAFOATE
     Dosage: AER 250/50
     Route: 065
  2. ALLOPURINOL. [Concomitant]
     Active Substance: ALLOPURINOL
     Route: 065
  3. NITROSTAT [Concomitant]
     Active Substance: NITROGLYCERIN
     Route: 060
  4. XALATAN [Concomitant]
     Active Substance: LATANOPROST
     Route: 065
  5. VITAMIN D3 [Concomitant]
     Active Substance: CHOLECALCIFEROL
     Dosage: 400 UNITS
     Route: 065
  6. ZANTAC [Concomitant]
     Active Substance: RANITIDINE HYDROCHLORIDE
     Route: 065
  7. CLARITIN [Concomitant]
     Active Substance: LORATADINE
     Route: 065
  8. NORVASC [Concomitant]
     Active Substance: AMLODIPINE BESYLATE
     Route: 065
  9. ASPIRIN. [Concomitant]
     Active Substance: ASPIRIN
     Route: 065
  10. LIPITOR [Concomitant]
     Active Substance: ATORVASTATIN CALCIUM
     Route: 065
  11. METOPROLOL. [Concomitant]
     Active Substance: METOPROLOL
     Route: 065
  12. ULTRAM [Concomitant]
     Active Substance: TRAMADOL HYDROCHLORIDE
     Route: 065
  13. AMITRIPTYLIN [Concomitant]
     Active Substance: AMITRIPTYLINE
     Route: 065
  14. GABAPENTIN. [Concomitant]
     Active Substance: GABAPENTIN
     Route: 065
  15. ESBRIET [Suspect]
     Active Substance: PIRFENIDONE
     Indication: IDIOPATHIC PULMONARY FIBROSIS
     Dosage: TAKE THREE CAPSULES BY MOUTH THREE TIMES A DAY
     Route: 048
  16. ISOSORBIDE MONONITRATE. [Concomitant]
     Active Substance: ISOSORBIDE MONONITRATE
     Route: 065
  17. NOVOLOG [Concomitant]
     Active Substance: INSULIN ASPART
     Dosage: 70/30
     Route: 065
  18. PLAVIX [Concomitant]
     Active Substance: CLOPIDOGREL BISULFATE
     Route: 065
  19. RANEXA [Concomitant]
     Active Substance: RANOLAZINE
     Route: 065

REACTIONS (1)
  - Chromaturia [Not Recovered/Not Resolved]
